FAERS Safety Report 5776536-8 (Version None)
Quarter: 2008Q2

REPORT INFORMATION
  Report Type: 
  Country: None (occurrence: None)
  Receive Date: 20080616
  Receipt Date: 20080604
  Transmission Date: 20081010
  Serious: Yes (Life-Threatening, Hospitalization)
  Sender: FDA-Public Use
  Company Number: GXKR2008NL05103

PATIENT
  Age: 69 Year
  Sex: Female

DRUGS (8)
  1. METFORMIN HCL [Suspect]
     Dosage: 1 G, TID,
  2. ACETYLSALICYLIC ACID SRT [Concomitant]
  3. CARVEDILOL [Concomitant]
  4. FUROSEMIDE [Concomitant]
  5. GLICLAZIDE (GLICLAZIDE) [Concomitant]
  6. TELMISARTAN (TELMISARTAN) [Concomitant]
  7. ATORVASTATIN CALCIUM [Concomitant]
  8. INSULIN (INSULIN) [Concomitant]

REACTIONS (14)
  - BRADYCARDIA [None]
  - CARDIAC ARREST [None]
  - COMA [None]
  - CONTINUOUS HAEMODIAFILTRATION [None]
  - DIARRHOEA [None]
  - HAEMODYNAMIC INSTABILITY [None]
  - HYPOGLYCAEMIA [None]
  - LACTIC ACIDOSIS [None]
  - NAUSEA [None]
  - OEDEMA PERIPHERAL [None]
  - RENAL FAILURE ACUTE [None]
  - RESPIRATORY DISTRESS [None]
  - SOMNOLENCE [None]
  - VOMITING [None]
